FAERS Safety Report 8811261 (Version 1)
Quarter: 2012Q4

REPORT INFORMATION
  Report Type: Spontaneous
  Country: US (occurrence: None)
  Receive Date: 20120924
  Receipt Date: 20120924
  Transmission Date: 20130627
  Serious: Yes (Hospitalization)
  Sender: FDA-Public Use
  Company Number: None

PATIENT
  Age: 65 Year
  Sex: Male
  Weight: 57.3 kg

DRUGS (2)
  1. CISPLATIN [Suspect]
     Indication: MALIGNANT TONGUE CANCER
     Route: 042
     Dates: start: 20120720, end: 20120914
  2. DOCETAXEL [Suspect]
     Route: 042
     Dates: start: 20120720

REACTIONS (3)
  - Abdominal pain [None]
  - Diarrhoea [None]
  - Dysgeusia [None]
